FAERS Safety Report 10523236 (Version 3)
Quarter: 2014Q4

REPORT INFORMATION
  Report Type: Report from Study
  Country: TW (occurrence: TW)
  Receive Date: 20141016
  Receipt Date: 20141110
  Transmission Date: 20150528
  Serious: Yes (Hospitalization)
  Sender: FDA-Public Use
  Company Number: TW-GLAXOSMITHKLINE-TW2014GSK001636

PATIENT
  Age: 51 Year
  Sex: Female
  Weight: 60 kg

DRUGS (10)
  1. NEURONTIN [Concomitant]
     Active Substance: GABAPENTIN
     Indication: HERPES VIRUS INFECTION
     Dosage: 300 MG, QD
     Dates: start: 20140930
  2. VALACYCLOVIR [Concomitant]
     Active Substance: VALACYCLOVIR HYDROCHLORIDE
     Indication: HERPES VIRUS INFECTION
     Dosage: 1 G, QD
     Dates: start: 20140929
  3. NEOMYCIN [Concomitant]
     Active Substance: NEOMYCIN
     Indication: HERPES VIRUS INFECTION
     Dosage: 1 DF, QD
     Dates: start: 20140929
  4. BLINDED BELIMUMAB [Suspect]
     Active Substance: BELIMUMAB
     Indication: SYSTEMIC LUPUS ERYTHEMATOSUS
     Dosage: UNK, WE
     Route: 058
     Dates: start: 20130423
  5. ACETAMINOPHEN. [Concomitant]
     Active Substance: ACETAMINOPHEN
     Indication: HERPES VIRUS INFECTION
     Dosage: 500 MG, QID
     Route: 048
     Dates: start: 20140929
  6. BC [Concomitant]
     Active Substance: ASPIRIN\CAFFEINE
     Indication: HERPES VIRUS INFECTION
     Dosage: 1 DF, QD
     Dates: start: 20140929
  7. BLINDED NO THERAPY [Suspect]
     Active Substance: UNSPECIFIED INGREDIENT
     Indication: SYSTEMIC LUPUS ERYTHEMATOSUS
     Dosage: UNK, WE
     Route: 058
     Dates: start: 20130423
  8. PLACEBO [Suspect]
     Active Substance: UNSPECIFIED INGREDIENT
     Indication: SYSTEMIC LUPUS ERYTHEMATOSUS
     Dosage: UNK, WE
     Route: 058
     Dates: start: 20130423
  9. BLINDED BELIMUMAB [Suspect]
     Active Substance: BELIMUMAB
     Indication: SYSTEMIC LUPUS ERYTHEMATOSUS
     Dosage: UNK, WE
     Route: 058
     Dates: start: 20130423
  10. AZATHIOPRINE. [Suspect]
     Active Substance: AZATHIOPRINE
     Indication: STEROID THERAPY

REACTIONS (1)
  - Herpes zoster [Recovered/Resolved]

NARRATIVE: CASE EVENT DATE: 20140927
